FAERS Safety Report 16320538 (Version 1)
Quarter: 2019Q2

REPORT INFORMATION
  Report Type: Spontaneous
  Country: US (occurrence: US)
  Receive Date: 20190516
  Receipt Date: 20190516
  Transmission Date: 20190711
  Serious: Yes (Other)
  Sender: FDA-Public Use
  Company Number: US-BAUSCH-BL-2019-014038

PATIENT
  Age: 17 Year
  Sex: Female

DRUGS (3)
  1. ALBUTEROL. [Suspect]
     Active Substance: ALBUTEROL
     Dosage: PLACED BACK ON CONTINUOUS ALBUTEROL NEBULIZATION TREATMENTS FOR 8 HOURS
     Route: 065
  2. ALBUTEROL. [Suspect]
     Active Substance: ALBUTEROL
     Indication: ASTHMA
     Dosage: 5 HOURS OF CONTINUOUS ALBUTEROL NEBULIZATION
     Route: 065
  3. ALBUTEROL. [Suspect]
     Active Substance: ALBUTEROL
     Dosage: WEANED TO EVERY 2-4 HOUR TREATMENTS
     Route: 065

REACTIONS (1)
  - Lactic acidosis [Recovering/Resolving]
